FAERS Safety Report 7128531-4 (Version None)
Quarter: 2010Q4

REPORT INFORMATION
  Report Type: 
  Country: None (occurrence: None)
  Receive Date: 20101130
  Receipt Date: 20101125
  Transmission Date: 20110411
  Serious: Yes (Death, Hospitalization)
  Sender: FDA-Public Use
  Company Number: CN-JNJFOC-20101108010

PATIENT
  Age: 72 Year
  Sex: Male

DRUGS (1)
  1. SPORANOX [Suspect]
     Indication: FUNGAL INFECTION
     Route: 048

REACTIONS (2)
  - DEATH [None]
  - DIARRHOEA [None]
